FAERS Safety Report 19030463 (Version 3)
Quarter: 2021Q2

REPORT INFORMATION
  Report Type: Spontaneous
  Country: US (occurrence: US)
  Receive Date: 20210319
  Receipt Date: 20210420
  Transmission Date: 20210717
  Serious: Yes (Hospitalization)
  Sender: FDA-Public Use
  Company Number: US-ROCHE-2791343

PATIENT
  Age: 65 Year
  Sex: Male
  Weight: 95.34 kg

DRUGS (19)
  1. BACLOFEN. [Concomitant]
     Active Substance: BACLOFEN
     Dosage: TAKE 1 TABLET BY MOUTH 5 TIMES A DAY AS DIRECTED
     Route: 048
  2. DULOXETINE. [Concomitant]
     Active Substance: DULOXETINE
     Dosage: TAKE 1 CAPSULE EVERY DAY BY ORAL ROUTE FOR 90 DAYS
     Route: 048
  3. LOPRESSOR [Concomitant]
     Active Substance: METOPROLOL TARTRATE
  4. OCREVUS [Suspect]
     Active Substance: OCRELIZUMAB
     Indication: SECONDARY PROGRESSIVE MULTIPLE SCLEROSIS
     Dosage: ON 30/SEP/2020, HE RECEIVED LAST INFUSION OF OCRELIZUMAB.?300MG DAY ONE AND 300 MG DAY 15 THEN INFUS
     Route: 042
     Dates: start: 201902
  5. ATORVASTATIN [Concomitant]
     Active Substance: ATORVASTATIN
  6. HYDRALAZINE [Concomitant]
     Active Substance: HYDRALAZINE HYDROCHLORIDE
  7. PREDNISONE. [Concomitant]
     Active Substance: PREDNISONE
     Dosage: TAKE 6 WITH BREAKFAST FOR 2 DAYS, THEN DECREASE DOSE BY 10 MG EVERY OTHER DAY
  8. DIAZEPAM. [Concomitant]
     Active Substance: DIAZEPAM
     Indication: MUSCLE SPASMS
     Dosage: TAKE 1 TABLET BY MOUTH AT BEDTIME AS NEEDED FOR SPASMS
  9. SOLU?MEDROL [Concomitant]
     Active Substance: METHYLPREDNISOLONE SODIUM SUCCINATE
     Route: 042
     Dates: start: 20200821
  10. BACLOFEN. [Concomitant]
     Active Substance: BACLOFEN
     Dosage: TAKE 1 TABLET 3 TIMES A DAY BY ORAL ROUTE AS DIRECTED.
     Route: 048
  11. ALPRAZOLAM. [Concomitant]
     Active Substance: ALPRAZOLAM
     Indication: MUSCLE SPASTICITY
     Dosage: TAKE 1 OR 2 PRN
  12. FUROSEMIDE. [Concomitant]
     Active Substance: FUROSEMIDE
     Dosage: TAKE 1 TABLET EVERY DAY BY ORAL ROUTE FOR 90 DAYS
     Route: 048
  13. CYCLOBENZAPRINE. [Concomitant]
     Active Substance: CYCLOBENZAPRINE
     Dosage: TAKE 1 TABLET DAILY AT BEDTIME AS NEEDED SPASMS
  14. LOSARTAN. [Concomitant]
     Active Substance: LOSARTAN
  15. GABAPENTIN. [Concomitant]
     Active Substance: GABAPENTIN
     Dosage: TAKE 1 CAPSULE EVERY DAY BY ORAL ROUTE AS DIRECTED.
     Route: 048
  16. MODAFINIL. [Concomitant]
     Active Substance: MODAFINIL
     Dosage: TAKE 1 TABLET BY MOUTH EVERY DAY
     Route: 048
  17. BETAMETHASONE DIPROPIONATE. [Concomitant]
     Active Substance: BETAMETHASONE DIPROPIONATE
     Route: 061
  18. HYDRALAZINE [Concomitant]
     Active Substance: HYDRALAZINE HYDROCHLORIDE
  19. METOPROLOL TARTRATE. [Concomitant]
     Active Substance: METOPROLOL TARTRATE
     Dosage: TAKE 1 MG 3 TIMES A DAY BY ORAL ROUTE FOR 90 DAYS
     Route: 048

REACTIONS (9)
  - Off label use [Unknown]
  - Mental disorder [Recovered/Resolved]
  - Muscular weakness [Not Recovered/Not Resolved]
  - Multiple sclerosis [Recovered/Resolved]
  - Dehydration [Recovered/Resolved]
  - Fall [Unknown]
  - Cognitive disorder [Recovered/Resolved]
  - Finger tapping test [Recovered/Resolved]
  - Diarrhoea [Recovered/Resolved]

NARRATIVE: CASE EVENT DATE: 202006
